FAERS Safety Report 17654437 (Version 12)
Quarter: 2020Q3

REPORT INFORMATION
  Report Type: Spontaneous
  Country: DE (occurrence: DE)
  Receive Date: 20200410
  Receipt Date: 20200928
  Transmission Date: 20201102
  Serious: Yes (Life-Threatening, Hospitalization, Other)
  Sender: FDA-Public Use
  Company Number: DE-AUROBINDO-AUR-APL-2020-017224

PATIENT
  Age: 69 Year
  Sex: Male
  Weight: 77 kg

DRUGS (33)
  1. SIMVASTATIN FILM?COATED TABLETS 40MG [Interacting]
     Active Substance: SIMVASTATIN
     Indication: CARDIAC DISORDER
     Dosage: 100 MILLIGRAM, ONCE A DAY
     Route: 065
     Dates: start: 201808
  2. PROCORALAN [Interacting]
     Active Substance: IVABRADINE
     Indication: CARDIAC DISORDER
  3. LEVETIRACETAM. [Concomitant]
     Active Substance: LEVETIRACETAM
     Indication: PRODUCT USED FOR UNKNOWN INDICATION
     Dosage: 1 DOSAGE FORM, TWO TIMES A DAY (2 DOSAGE FORM, ONCE A DAY)
     Route: 065
  4. RAMIPRIL. [Concomitant]
     Active Substance: RAMIPRIL
     Indication: HYPERTENSION
     Dosage: 10 MILLIGRAM, ONCE A DAY
     Route: 065
     Dates: start: 201808
  5. SPIRONOLACTONE. [Concomitant]
     Active Substance: SPIRONOLACTONE
     Indication: PRODUCT USED FOR UNKNOWN INDICATION
     Dosage: 50 MILLIGRAM, ONCE A DAY
     Route: 065
     Dates: start: 201808
  6. SIMVASTATIN FILM?COATED TABLETS 40MG [Interacting]
     Active Substance: SIMVASTATIN
     Indication: HYPERTENSION
     Dosage: 40 MILLIGRAM, ONCE A DAY (0?0?1)
     Route: 048
     Dates: start: 201808
  7. ELIQUIS [Interacting]
     Active Substance: APIXABAN
     Indication: CEREBROVASCULAR ACCIDENT PROPHYLAXIS
     Dosage: UNK
     Route: 065
  8. JANUMET [Interacting]
     Active Substance: METFORMIN HYDROCHLORIDE\SITAGLIPTIN PHOSPHATE
     Indication: DIABETES MELLITUS
     Dosage: 1 DOSAGE FORM, TWO TIMES A DAY (1?0?1)
     Route: 065
     Dates: start: 201808
  9. JANUMET [Interacting]
     Active Substance: METFORMIN HYDROCHLORIDE\SITAGLIPTIN PHOSPHATE
     Dosage: 1 DOSAGE FORM, DAILY, (50/1000MG),
     Route: 065
     Dates: start: 201808
  10. MILGAMMA PROTEKT [Interacting]
     Active Substance: BENFOTIAMINE
     Indication: CARDIOVASCULAR DISORDER
     Dosage: 300 MILLIGRAM, ONCE A DAY (1)
     Route: 065
     Dates: start: 201808
  11. MILGAMMA PROTEKT [Interacting]
     Active Substance: BENFOTIAMINE
     Indication: CEREBROVASCULAR ACCIDENT PROPHYLAXIS
  12. ALLOPURINOL. [Concomitant]
     Active Substance: ALLOPURINOL
     Indication: GOUT
     Dosage: 100 MILLIGRAM, ONCE A DAY
     Route: 065
     Dates: start: 201808
  13. SIMVASTATIN FILM?COATED TABLETS 40MG [Interacting]
     Active Substance: SIMVASTATIN
     Indication: DIABETES MELLITUS
     Dosage: 10 MILLIGRAM, ONCE A DAY
     Route: 065
     Dates: start: 201808
  14. ELIQUIS [Interacting]
     Active Substance: APIXABAN
     Indication: ATRIAL FIBRILLATION
     Dosage: 5 MILLIGRAM, TWO TIMES A DAY (1?0?1)10 MG ONCE A DAY
     Route: 065
     Dates: start: 201808
  15. CARVEDILOL  FILM?COATED TABLETS 25 MG [Interacting]
     Active Substance: CARVEDILOL
     Indication: CARDIAC DISORDER
     Dosage: 25 MILLIGRAM, TWO TIMES A DAY (1?01)
     Route: 065
     Dates: start: 201808
  16. PROCORALAN [Interacting]
     Active Substance: IVABRADINE
     Indication: CARDIAC DISORDER
     Dosage: 7.5 MILLIGRAM, ONCE A DAY (1?0?0)
     Route: 065
     Dates: start: 201808
  17. TORASEMIDE [Interacting]
     Active Substance: TORSEMIDE
     Indication: RENAL DISORDER
     Dosage: 10 MILLIGRAM, ONCE A DAY (1?0?0)
     Route: 065
     Dates: start: 201808
  18. AMLODIPINE [Suspect]
     Active Substance: AMLODIPINE BESYLATE
     Indication: HYPERTENSION
     Dosage: 5 MILLIGRAM, TWO TIMES A DAY (1?0?1)(10 MG ONCE A DAY)
     Route: 065
     Dates: start: 201808
  19. RAMIPRIL TABLETS 5MG [Interacting]
     Active Substance: RAMIPRIL
     Indication: HYPERTENSION
     Dosage: 5 MILLIGRAM, TWO TIMES A DAY (1?0?1)
     Route: 065
     Dates: start: 201808
  20. SIMVASTATIN FILM?COATED TABLETS 40MG [Interacting]
     Active Substance: SIMVASTATIN
     Indication: BLOOD CHOLESTEROL
     Dosage: 50 MILLIGRAM, ONCE A DAY
     Route: 048
     Dates: start: 20110506
  21. SIMVASTATIN FILM?COATED TABLETS 40MG [Interacting]
     Active Substance: SIMVASTATIN
     Indication: BLOOD CHOLESTEROL ABNORMAL
     Dosage: 50 MILLIGRAM, ONCE A DAY
     Route: 048
     Dates: start: 202008
  22. BENFOTIAMINE [Suspect]
     Active Substance: BENFOTIAMINE
     Indication: CARDIOVASCULAR DISORDER
     Dosage: 300 MILLIGRAM, ONCE A DAY
     Route: 065
     Dates: start: 201808
  23. SPIRONOLACTONE. [Interacting]
     Active Substance: SPIRONOLACTONE
     Indication: CARDIAC DISORDER
     Dosage: 50 MILLIGRAM, ONCE A DAY (1?0?0)
     Route: 048
     Dates: start: 20110506
  24. INSULIN GLARGINE [Interacting]
     Active Substance: INSULIN GLARGINE
     Indication: DIABETES MELLITUS
     Dosage: 15 INTERNATIONAL UNIT, ONCE A DAY,IN THE EVENING
     Route: 065
     Dates: start: 201808
  25. ALLOPURINOL 100 MG TABLETS [Interacting]
     Active Substance: ALLOPURINOL
     Indication: GOUT
     Dosage: 100 MILLIGRAM, ONCE A DAY
     Route: 065
     Dates: start: 201808
  26. SIMVASTATIN FILM?COATED TABLETS 40MG [Interacting]
     Active Substance: SIMVASTATIN
     Indication: GOUT
     Dosage: 15 INTERNATIONAL UNIT, ONCE A DAY
     Route: 065
     Dates: start: 201808
  27. ABASAGLAR [Interacting]
     Active Substance: INSULIN GLARGINE
     Indication: DIABETES MELLITUS
     Dosage: 15 INTERNATIONAL UNIT, DAILY
     Route: 065
     Dates: start: 201808
  28. AVASTIN [Interacting]
     Active Substance: BEVACIZUMAB
     Indication: DIABETIC RETINAL OEDEMA
     Dosage: UNK, EINSPRITZEN INS RECHTE AUGE UM 13.30 UHR
     Route: 031
     Dates: start: 20200115
  29. IVABRADINE FILM COATED TABLETS [Interacting]
     Active Substance: IVABRADINE
     Indication: CARDIAC DISORDER
     Dosage: 7.5 MILLIGRAM, ONCE A DAY
     Route: 065
     Dates: start: 201808
  30. SIMVASTATIN FILM?COATED TABLETS 40MG [Interacting]
     Active Substance: SIMVASTATIN
     Indication: RENAL DISORDER
     Dosage: 50 MILLIGRAM, ONCE A DAY
     Route: 065
     Dates: start: 201808
  31. AVASTIN [Interacting]
     Active Substance: BEVACIZUMAB
     Dosage: 1 DOSAGE FORM
     Route: 031
     Dates: start: 20200115
  32. SPIRONOLACTONE. [Interacting]
     Active Substance: SPIRONOLACTONE
     Indication: CORONARY ARTERY DISEASE
     Dosage: 50 MILLIGRAM, ONCE A DAY (1?0?0)
     Route: 048
     Dates: start: 201808
  33. LEVETIRACETAM. [Concomitant]
     Active Substance: LEVETIRACETAM
     Indication: PRODUCT USED FOR UNKNOWN INDICATION
     Dosage: 1 DOSAGE FORM, TWO TIMES A DAY (2 DOSAGE FORM, ONCE A DAY)
     Route: 065

REACTIONS (9)
  - Off label use [Recovered/Resolved]
  - Status epilepticus [Recovering/Resolving]
  - Product use issue [Recovered/Resolved]
  - Eye movement disorder [Recovered/Resolved]
  - Movement disorder [Recovered/Resolved]
  - Oculogyric crisis [Recovered/Resolved]
  - Seizure [Recovered/Resolved]
  - Muscle spasms [Recovered/Resolved]
  - Drug interaction [Recovered/Resolved]

NARRATIVE: CASE EVENT DATE: 201808
